FAERS Safety Report 9163263 (Version 2)
Quarter: 2013Q1

REPORT INFORMATION
  Report Type: Spontaneous
  Country: JP (occurrence: JP)
  Receive Date: 20130314
  Receipt Date: 20130320
  Transmission Date: 20140127
  Serious: Yes (Hospitalization)
  Sender: FDA-Public Use
  Company Number: JP-GLAXOSMITHKLINE-B0873440A

PATIENT
  Age: 84 Year
  Sex: Male

DRUGS (3)
  1. REVOLADE [Suspect]
     Indication: IDIOPATHIC THROMBOCYTOPENIC PURPURA
     Route: 048
     Dates: start: 20110311, end: 20130305
  2. AMLODIN [Concomitant]
     Route: 048
     Dates: end: 20130305
  3. NU-LOTAN [Concomitant]
     Route: 048
     Dates: end: 20130305

REACTIONS (1)
  - Cerebral infarction [Recovered/Resolved]
